FAERS Safety Report 7372439-6 (Version None)
Quarter: 2011Q1

REPORT INFORMATION
  Report Type: 
  Country: None (occurrence: None)
  Receive Date: 20110322
  Receipt Date: 20110322
  Transmission Date: 20110831
  Serious: Yes (Hospitalization)
  Sender: FDA-Public Use
  Company Number: None

PATIENT
  Age: 63 Year
  Sex: Male
  Weight: 63 kg

DRUGS (4)
  1. VANCOMYCIN [Suspect]
     Indication: SEPSIS
     Dosage: 1 GM BID IV
     Route: 042
     Dates: start: 20110306, end: 20110313
  2. VANCOMYCIN [Suspect]
     Indication: PNEUMONIA
     Dosage: 1 GM BID IV
     Route: 042
     Dates: start: 20110306, end: 20110313
  3. PIPERACILLIN AND TAZOBACTAM [Suspect]
     Indication: SEPSIS
     Dosage: 2.25 MG QID IV
     Route: 042
     Dates: start: 20110308, end: 20110313
  4. PIPERACILLIN AND TAZOBACTAM [Suspect]
     Indication: PNEUMONIA
     Dosage: 2.25 MG QID IV
     Route: 042
     Dates: start: 20110308, end: 20110313

REACTIONS (1)
  - BLOOD CREATININE INCREASED [None]
